FAERS Safety Report 15975393 (Version 3)
Quarter: 2019Q2

REPORT INFORMATION
  Report Type: Report from Study
  Country: US (occurrence: US)
  Receive Date: 20190218
  Receipt Date: 20190408
  Transmission Date: 20190711
  Serious: Yes (Hospitalization, Other)
  Sender: FDA-Public Use
  Company Number: US-BIOGEN-2018BI00588462

PATIENT
  Age: 50 Year
  Sex: Female
  Weight: 86.53 kg

DRUGS (20)
  1. AMPYRA [Suspect]
     Active Substance: DALFAMPRIDINE
     Route: 050
     Dates: start: 20170728
  2. TECFIDERA [Suspect]
     Active Substance: DIMETHYL FUMARATE
     Indication: RELAPSING-REMITTING MULTIPLE SCLEROSIS
     Route: 050
  3. OXYBUTYNIN. [Concomitant]
     Active Substance: OXYBUTYNIN CHLORIDE
     Indication: PRODUCT USED FOR UNKNOWN INDICATION
     Route: 050
     Dates: start: 20180515
  4. BACLOFEN. [Concomitant]
     Active Substance: BACLOFEN
     Indication: RELAPSING-REMITTING MULTIPLE SCLEROSIS
     Route: 050
  5. BACLOFEN. [Concomitant]
     Active Substance: BACLOFEN
     Dosage: 20 MILLIGRAM, 1 TABLET AT BEDTIME AND 1/2 TO 1 TABLET DAILY AS NEEDED
     Route: 050
     Dates: start: 20170710
  6. MELOXICAM. [Concomitant]
     Active Substance: MELOXICAM
     Indication: PRODUCT USED FOR UNKNOWN INDICATION
     Route: 050
  7. DIAZEPAM. [Concomitant]
     Active Substance: DIAZEPAM
     Indication: PRODUCT USED FOR UNKNOWN INDICATION
     Dosage: 10 MILLIGRAM, 2 TABLETS PRIOR TO MRI
     Route: 050
  8. AMPYRA [Suspect]
     Active Substance: DALFAMPRIDINE
     Route: 050
     Dates: start: 20170728
  9. TOPIRAMATE. [Concomitant]
     Active Substance: TOPIRAMATE
     Indication: MIGRAINE
     Route: 050
  10. SALINE NASAL SPRAY [Concomitant]
     Active Substance: SODIUM CHLORIDE
     Indication: PRODUCT USED FOR UNKNOWN INDICATION
     Route: 050
  11. SUMATRIPTAN SUCCINATE. [Concomitant]
     Active Substance: SUMATRIPTAN SUCCINATE
     Indication: MIGRAINE
     Route: 050
  12. AMPYRA [Suspect]
     Active Substance: DALFAMPRIDINE
     Indication: MULTIPLE SCLEROSIS
     Route: 050
     Dates: start: 20170728
  13. VITAMIN D3 [Concomitant]
     Active Substance: CHOLECALCIFEROL
     Dosage: 2000 INTERNATIONAL UNIT, QID
     Route: 050
     Dates: start: 20170814
  14. DIAZEPAM. [Concomitant]
     Active Substance: DIAZEPAM
     Indication: PRODUCT USED FOR UNKNOWN INDICATION
     Route: 050
  15. FLEXERIL [Suspect]
     Active Substance: CYCLOBENZAPRINE HYDROCHLORIDE
     Indication: MUSCLE SPASTICITY
     Dosage: 10 MILLIGRAM, QD AT 2 PM
     Route: 050
  16. HYDROXYZINE HCL [Concomitant]
     Active Substance: HYDROXYZINE HYDROCHLORIDE
     Indication: PRODUCT USED FOR UNKNOWN INDICATION
     Dosage: 25 MILLIGRAM, Q 8 HRS AS NEEDED
     Route: 050
  17. AMPYRA [Suspect]
     Active Substance: DALFAMPRIDINE
     Route: 050
     Dates: start: 20170728
  18. MONTELUKAST [Concomitant]
     Active Substance: MONTELUKAST SODIUM
     Indication: PRODUCT USED FOR UNKNOWN INDICATION
     Route: 050
  19. VENLAFAXINE [Concomitant]
     Active Substance: VENLAFAXINE HYDROCHLORIDE
     Indication: DEPRESSION
     Route: 050
  20. VITAMIN D3 [Concomitant]
     Active Substance: CHOLECALCIFEROL
     Indication: VITAMIN D DEFICIENCY
     Route: 050
     Dates: start: 20170814

REACTIONS (43)
  - Mobility decreased [Not Recovered/Not Resolved]
  - Post-traumatic stress disorder [Unknown]
  - Intervertebral disc disorder [Unknown]
  - Cognitive disorder [Not Recovered/Not Resolved]
  - Musculoskeletal stiffness [Not Recovered/Not Resolved]
  - Foot fracture [Recovered/Resolved]
  - Dysphagia [Unknown]
  - Hypersomnia [Unknown]
  - Dyspnoea [Unknown]
  - Muscle spasticity [Not Recovered/Not Resolved]
  - Product dose omission [Unknown]
  - Fall [Recovered/Resolved]
  - Memory impairment [Unknown]
  - Bone pain [Unknown]
  - Loose tooth [Unknown]
  - Central nervous system lesion [Unknown]
  - Hypoaesthesia [Unknown]
  - Back pain [Unknown]
  - Vomiting [Unknown]
  - Transfusion [Unknown]
  - Physical assault [Unknown]
  - Dysstasia [Unknown]
  - Balance disorder [Unknown]
  - Cholelithiasis [Recovered/Resolved]
  - Oedema [Unknown]
  - Tremor [Unknown]
  - Arthralgia [Unknown]
  - Pain [Not Recovered/Not Resolved]
  - Pruritus [Unknown]
  - Toothache [Unknown]
  - Abdominal pain [Unknown]
  - Joint swelling [Recovered/Resolved]
  - Muscle twitching [Unknown]
  - Ataxia [Unknown]
  - Sinus disorder [Unknown]
  - Visual impairment [Not Recovered/Not Resolved]
  - Paraesthesia [Unknown]
  - Constipation [Unknown]
  - Peripheral swelling [Unknown]
  - Condition aggravated [Unknown]
  - Diarrhoea [Unknown]
  - Multiple sclerosis relapse [Recovered/Resolved]
  - Fatigue [Not Recovered/Not Resolved]

NARRATIVE: CASE EVENT DATE: 201807
